FAERS Safety Report 5335325-9 (Version None)
Quarter: 2007Q2

REPORT INFORMATION
  Report Type: 
  Country: None (occurrence: None)
  Receive Date: 20070525
  Receipt Date: 20070514
  Transmission Date: 20071010
  Serious: Yes (Hospitalization)
  Sender: FDA-Public Use
  Company Number: US-PFIZER INC-2007038382

PATIENT
  Sex: Male

DRUGS (18)
  1. PREDNISONE TAB [Suspect]
  2. ADRIAMYCIN PFS [Suspect]
  3. EPOGEN [Suspect]
     Indication: ANAEMIA OF MALIGNANT DISEASE
     Dosage: DAILY DOSE:80000I.U.-FREQ:FREQUENCY: 1 IN 3 WEEK
     Route: 058
  4. CYTOXAN [Suspect]
  5. VINCRISTINE [Suspect]
  6. RITUXAN [Suspect]
  7. ALPHAGAN [Concomitant]
  8. PLAQUENIL [Concomitant]
     Route: 048
  9. CYANOCOBALAMIN [Concomitant]
     Route: 058
  10. SULFASALAZINE [Concomitant]
     Route: 048
  11. ZANTAC [Concomitant]
     Route: 048
  12. PREDNISONE TAB [Concomitant]
     Route: 048
  13. VITAMINS [Concomitant]
     Route: 048
  14. CALTRATE [Concomitant]
     Route: 048
  15. NORCO [Concomitant]
  16. HYDROCODONE BITARTRATE [Concomitant]
     Route: 048
  17. LUMIGAN [Concomitant]
  18. XANAX [Concomitant]

REACTIONS (1)
  - FEBRILE NEUTROPENIA [None]
